FAERS Safety Report 8761359 (Version 3)
Quarter: 2014Q3

REPORT INFORMATION
  Report Type: Spontaneous
  Country: US (occurrence: US)
  Receive Date: 20120830
  Receipt Date: 20140827
  Transmission Date: 20150326
  Serious: Yes (Hospitalization, Disabling, Other)
  Sender: FDA-Public Use
  Company Number: US-009507513-2010SP010131

PATIENT
  Sex: Female
  Weight: 92.63 kg

DRUGS (1)
  1. NUVARING [Suspect]
     Active Substance: ETHINYL ESTRADIOL\ETONOGESTREL
     Indication: CONTRACEPTION
     Dosage: UNK UNK, QM
     Dates: start: 20080208, end: 20080221

REACTIONS (10)
  - Cholecystectomy [Unknown]
  - Depression [Unknown]
  - Headache [Unknown]
  - Nausea [Unknown]
  - Pulmonary embolism [Recovered/Resolved]
  - Pharyngitis [Unknown]
  - Haemorrhoids [Unknown]
  - Gastrointestinal disorder [Unknown]
  - Bronchitis [Unknown]
  - Deep vein thrombosis [Unknown]

NARRATIVE: CASE EVENT DATE: 2008
